FAERS Safety Report 6434304-8 (Version None)
Quarter: 2009Q4

REPORT INFORMATION
  Report Type: 
  Country: None (occurrence: None)
  Receive Date: 20091110
  Receipt Date: 20090828
  Transmission Date: 20100525
  Serious: Yes (Life-Threatening, Hospitalization)
  Sender: FDA-Public Use
  Company Number: JP-ASTRAZENECA-2009SE04428

PATIENT
  Age: 68 Year
  Sex: Male

DRUGS (3)
  1. CRESTOR [Suspect]
     Indication: HYPERLIPIDAEMIA
     Route: 048
     Dates: start: 20080101
  2. CLARITH [Suspect]
     Dosage: NUMBER OF SEPARATE DOSES UNKNOWN
     Route: 048
     Dates: start: 20080901
  3. ACETAMINOPHEN [Concomitant]
     Route: 048
     Dates: start: 20080901

REACTIONS (4)
  - NEUROPATHY PERIPHERAL [None]
  - PIGMENTATION DISORDER [None]
  - RHABDOMYOLYSIS [None]
  - SKIN INDURATION [None]
